FAERS Safety Report 18747756 (Version 1)
Quarter: 2021Q1

REPORT INFORMATION
  Report Type: Report from Study
  Country: BR (occurrence: BR)
  Receive Date: 20210115
  Receipt Date: 20210115
  Transmission Date: 20210419
  Serious: Yes (Other)
  Sender: FDA-Public Use
  Company Number: BR-UCBSA-2019035368

PATIENT
  Sex: Female
  Weight: 44 kg

DRUGS (12)
  1. INDERAL [Concomitant]
     Active Substance: PROPRANOLOL HYDROCHLORIDE
     Indication: HYPERTENSION
     Dosage: 1 DOSAGE FORM, ONCE DAILY (QD)
     Route: 048
  2. POLARAMINE [Concomitant]
     Active Substance: DEXCHLORPHENIRAMINE MALEATE
     Indication: HYPERSENSITIVITY
     Dosage: UNK, 2X/DAY (BID)
     Route: 048
  3. CERTOLIZUMAB PEGOL [Suspect]
     Active Substance: CERTOLIZUMAB PEGOL
     Dosage: 400 MILLIGRAM, EV 4 WEEKS
     Route: 058
     Dates: start: 2019, end: 2019
  4. PHENERGAN [Concomitant]
     Active Substance: PROMETHAZINE HYDROCHLORIDE
     Indication: PRURITUS
     Dosage: 1 DOSAGE FORM, ONCE DAILY (QD)
     Route: 061
     Dates: start: 20190910, end: 20190910
  5. COLAGEN [Concomitant]
     Indication: RHEUMATOID ARTHRITIS
     Dosage: UNK
     Route: 048
  6. PHENERGAN [Concomitant]
     Active Substance: PROMETHAZINE HYDROCHLORIDE
     Indication: PRURITUS
     Dosage: 1 DOSAGE FORM, 2X/2 DAYS
     Route: 048
     Dates: start: 20190910, end: 20190917
  7. VITAMIN B COMPLEX NOS [Concomitant]
     Active Substance: CYANOCOBALAMIN\PYRIDOXINE HYDROCHLORIDE\RIBOFLAVIN\SODIUM PANTOTHENATE\THIAMINE HYDROCHLORIDE\VITAMIN B COMPLEX
     Indication: RHEUMATOID ARTHRITIS
     Dosage: UNK
     Route: 048
  8. CERTOLIZUMAB PEGOL [Suspect]
     Active Substance: CERTOLIZUMAB PEGOL
     Indication: RHEUMATOID ARTHRITIS
     Dosage: EVERY 3 MONTHS
     Route: 058
     Dates: start: 2019, end: 2019
  9. CERTOLIZUMAB PEGOL [Suspect]
     Active Substance: CERTOLIZUMAB PEGOL
     Dosage: 200 MILLIGRAM, EV 2 WEEKS(QOW)
     Route: 058
     Dates: start: 2019, end: 2019
  10. DEXAMETASONA [DEXAMETHASONE ACETATE] [Concomitant]
     Active Substance: DEXAMETHASONE ACETATE
     Indication: PRURITUS
     Dosage: 1 DOSAGE FORM, ONCE DAILY (QD)
     Route: 061
     Dates: start: 20190910, end: 20190917
  11. RITUXIMAB. [Concomitant]
     Active Substance: RITUXIMAB
     Indication: RHEUMATOID ARTHRITIS
     Dosage: 1 APPLICATION EVERY 15DAYS
     Route: 042
  12. ALENDRONATE SODIUM. [Concomitant]
     Active Substance: ALENDRONATE SODIUM
     Indication: RHEUMATOID ARTHRITIS
     Dosage: 1 TABLET PER WEEK
     Route: 048

REACTIONS (5)
  - Weight decreased [Recovering/Resolving]
  - Inappropriate schedule of product administration [Unknown]
  - Finger deformity [Not Recovered/Not Resolved]
  - Rheumatoid arthritis [Not Recovered/Not Resolved]
  - Hypersensitivity [Recovered/Resolved]

NARRATIVE: CASE EVENT DATE: 2019
